FAERS Safety Report 8421183-2 (Version None)
Quarter: 2012Q2

REPORT INFORMATION
  Report Type: 
  Country: None (occurrence: None)
  Receive Date: 20120604
  Receipt Date: 20120604
  Transmission Date: 20120825
  Serious: Yes (Hospitalization)
  Sender: FDA-Public Use
  Company Number: None

PATIENT
  Age: 70 Year
  Sex: Male
  Weight: 118.6 kg

DRUGS (1)
  1. SULFAMETHOXAZOLE AND TRIMETHOPRIM [Suspect]
     Indication: INTERSTITIAL LUNG DISEASE
     Dosage: 800/160 MG PO
     Route: 048
     Dates: start: 20120227, end: 20120301

REACTIONS (1)
  - TOXIC EPIDERMAL NECROLYSIS [None]
